FAERS Safety Report 23390775 (Version 2)
Quarter: 2024Q1

REPORT INFORMATION
  Report Type: Report from Study
  Country: US (occurrence: US)
  Receive Date: 20240111
  Receipt Date: 20240213
  Transmission Date: 20240410
  Serious: Yes (Hospitalization, Other)
  Sender: FDA-Public Use
  Company Number: US-BAXTER-2024BAX010135

PATIENT
  Age: 55 Year
  Sex: Female
  Weight: 77.8 kg

DRUGS (18)
  1. CYCLOPHOSPHAMIDE [Suspect]
     Active Substance: CYCLOPHOSPHAMIDE
     Indication: B-cell type acute leukaemia
     Dosage: 150 MG/M2 CYCLIC (CYCLE 1,3: 150 MG/M2, EVERY 12 HRS X 6 DOSES, DAYS 1-3)
     Route: 042
     Dates: start: 20231106, end: 20231109
  2. CYCLOPHOSPHAMIDE [Suspect]
     Active Substance: CYCLOPHOSPHAMIDE
     Indication: Philadelphia chromosome negative
  3. MESNA [Suspect]
     Active Substance: MESNA
     Indication: B-cell type acute leukaemia
     Dosage: 300 MG/M2, (CYCLIC CYCLE 1,3: 300 MG/M2  DAYS 1-3
     Route: 042
  4. MESNA [Suspect]
     Active Substance: MESNA
     Indication: Philadelphia chromosome negative
  5. VINCRISTINE SULFATE [Suspect]
     Active Substance: VINCRISTINE SULFATE
     Indication: B-cell type acute leukaemia
     Dosage: 2 MG CYCLIC (CYCLE 1, 3: 2 MG, DAY 1, DAY 8)
     Route: 042
     Dates: start: 20231106, end: 20231113
  6. VINCRISTINE SULFATE [Suspect]
     Active Substance: VINCRISTINE SULFATE
     Indication: Philadelphia chromosome negative
  7. CYTARABINE [Suspect]
     Active Substance: CYTARABINE
     Indication: B-cell type acute leukaemia
     Dosage: CYCLIC (CYCLE 2, 4: 0.5 G/M2/DOSE, EVERY 12 HRS X 4 DOSES, DAYS 2, 3)
     Route: 042
     Dates: start: 20231124, end: 20231129
  8. CYTARABINE [Suspect]
     Active Substance: CYTARABINE
     Indication: Philadelphia chromosome negative
     Dosage: 100 MG CYCLIC (CYCLE 1-2: 100 MG, DAY 2, DAY 8 (IT CHEMOTHERAPY)
     Route: 037
  9. INOTUZUMAB OZOGAMICIN [Suspect]
     Active Substance: INOTUZUMAB OZOGAMICIN
     Indication: B-cell type acute leukaemia
     Dosage: CYCLIC (C1: TOTAL 0.9 MG/M2 (0.6 MG/M2 D2, 0.3 MG/M2 D8), CYCLES 2-4: TOTAL 0.6 MG/M2 (0.3 MG/M2 D2
     Route: 042
     Dates: start: 20231107, end: 20231205
  10. INOTUZUMAB OZOGAMICIN [Suspect]
     Active Substance: INOTUZUMAB OZOGAMICIN
     Indication: Philadelphia chromosome negative
  11. METHOTREXATE SODIUM [Suspect]
     Active Substance: METHOTREXATE SODIUM
     Indication: Acute lymphocytic leukaemia
     Dosage: 250 MG/M2 CYCLIC (CYCLE 2, 4: 250 MG/M2, DAY 1)
     Route: 042
     Dates: start: 20231120, end: 20231128
  12. METHOTREXATE SODIUM [Suspect]
     Active Substance: METHOTREXATE SODIUM
     Indication: Philadelphia chromosome negative
     Dosage: 12 MG CYCLIC (CYCLE 1-2: 12 MG, DAY 2, DAY 8)
     Route: 037
  13. RITUXIMAB [Suspect]
     Active Substance: RITUXIMAB
     Indication: B-cell type acute leukaemia
     Dosage: 375 MG/M2, CYCLIC (CYCLE 1-4, 375 MG/M2, DAY 2, DAY 8)
     Route: 042
     Dates: start: 20231107, end: 20231205
  14. RITUXIMAB [Suspect]
     Active Substance: RITUXIMAB
     Indication: Philadelphia chromosome negative
  15. DEXAMETHASONE [Suspect]
     Active Substance: DEXAMETHASONE
     Indication: B-cell type acute leukaemia
     Dosage: 20 MG, CYCLIC (CYCLE 1,3: 20 MG, DAYS 1-4, DAYS 11-14, ROUTE OF ADMINISTRATION: IV OR PO
     Route: 050
     Dates: start: 20231109, end: 20231119
  16. DEXAMETHASONE [Suspect]
     Active Substance: DEXAMETHASONE
     Indication: Philadelphia chromosome negative
  17. METHYLPREDNISOLONE [Suspect]
     Active Substance: METHYLPREDNISOLONE
     Indication: B-cell type acute leukaemia
     Dosage: 50 MG CYCLIC (CYCLE 2, 4: 50 MG, EVERY 12 HRS X 6 DOSES, DAYS 1-3),
     Route: 042
  18. METHYLPREDNISOLONE [Suspect]
     Active Substance: METHYLPREDNISOLONE
     Indication: Philadelphia chromosome negative

REACTIONS (1)
  - Febrile neutropenia [Recovering/Resolving]

NARRATIVE: CASE EVENT DATE: 20231206
